FAERS Safety Report 4293480-6 (Version None)
Quarter: 2004Q1

REPORT INFORMATION
  Report Type: 
  Country: None (occurrence: None)
  Receive Date: 20040212
  Receipt Date: 20030626
  Transmission Date: 20041129
  Serious: No
  Sender: FDA-Public Use
  Company Number: US-GLAXOSMITHKLINE-A0414169A

PATIENT
  Age: 55 Year
  Sex: Female

DRUGS (5)
  1. PAXIL [Suspect]
     Route: 048
  2. CELEBREX [Concomitant]
  3. LISINOPRIL [Concomitant]
  4. VITAMIN E [Concomitant]
  5. MULTI-VITAMIN [Concomitant]

REACTIONS (7)
  - ANXIETY [None]
  - CRYING [None]
  - DEPRESSION [None]
  - IMPATIENCE [None]
  - PARAESTHESIA [None]
  - SCREAMING [None]
  - TREMOR [None]
